FAERS Safety Report 18222321 (Version 1)
Quarter: 2020Q3

REPORT INFORMATION
  Report Type: Spontaneous
  Country: CA (occurrence: CA)
  Receive Date: 20200902
  Receipt Date: 20200902
  Transmission Date: 20201103
  Serious: Yes (Disabling)
  Sender: FDA-Public Use
  Company Number: CA-ACCORD-198292

PATIENT
  Age: 15 Year
  Sex: Male

DRUGS (15)
  1. SULFAMETHOXAZOLE/TRIMETHOPRIM [Concomitant]
     Active Substance: SULFAMETHOXAZOLE\TRIMETHOPRIM
  2. CYANOCOBALAMIN. [Concomitant]
     Active Substance: CYANOCOBALAMIN
  3. ZOPICLONE [Concomitant]
     Active Substance: ZOPICLONE
  4. OLANZAPINE. [Concomitant]
     Active Substance: OLANZAPINE
  5. GABAPENTIN. [Concomitant]
     Active Substance: GABAPENTIN
  6. CYCLOPHOSPHAMIDE/CYCLOPHOSPHAMIDE MONOHYDRATE [Concomitant]
     Active Substance: CYCLOPHOSPHAMIDE
  7. FOLIC ACID. [Concomitant]
     Active Substance: FOLIC ACID
  8. ONDANSETRON [Concomitant]
     Active Substance: ONDANSETRON
  9. FUROSEMIDE. [Concomitant]
     Active Substance: FUROSEMIDE
  10. EMEND [Concomitant]
     Active Substance: APREPITANT
  11. CLONIDINE. [Concomitant]
     Active Substance: CLONIDINE
  12. VINCRISTINE [Concomitant]
     Active Substance: VINCRISTINE
  13. METOCLOPRAMIDE. [Concomitant]
     Active Substance: METOCLOPRAMIDE
  14. CISPLATIN. [Suspect]
     Active Substance: CISPLATIN
     Indication: MEDULLOBLASTOMA
     Route: 042
  15. FILGRASTIM [Concomitant]
     Active Substance: FILGRASTIM

REACTIONS (1)
  - Ototoxicity [Unknown]
